FAERS Safety Report 15572297 (Version 2)
Quarter: 2018Q4

REPORT INFORMATION
  Report Type: Spontaneous
  Country: AT (occurrence: AT)
  Receive Date: 20181031
  Receipt Date: 20181116
  Transmission Date: 20190205
  Serious: Yes (Hospitalization, Other)
  Sender: FDA-Public Use
  Company Number: PHHY2017AT099054

PATIENT
  Age: 68 Year
  Sex: Female
  Weight: 73 kg

DRUGS (5)
  1. CEFUROXIM [Suspect]
     Active Substance: CEFUROXIME
     Indication: URINARY TRACT INFECTION
     Dosage: 1.5 G, TID
     Route: 042
     Dates: start: 20171226, end: 20180101
  2. NOVALGIN (METAMIZOLE SODIUM) [Concomitant]
     Active Substance: METAMIZOLE SODIUM
     Indication: URINARY TRACT INFECTION
     Dosage: UNK
     Route: 065
  3. CEFUROXIM [Suspect]
     Active Substance: CEFUROXIME
     Dosage: UNK
     Route: 048
  4. GILENYA [Suspect]
     Active Substance: FINGOLIMOD HYDROCHLORIDE
     Indication: RELAPSING-REMITTING MULTIPLE SCLEROSIS
     Dosage: 0.5 MG, UNK
     Route: 048
     Dates: start: 20151029, end: 20180120
  5. EXFORGE [Suspect]
     Active Substance: AMLODIPINE BESYLATE\VALSARTAN
     Indication: HYPERTENSION
     Dosage: 1 DF, UNK
     Route: 065
     Dates: start: 201601

REACTIONS (9)
  - Cholestasis [Unknown]
  - Hepatitis toxic [Recovered/Resolved]
  - Blood disorder [Recovered/Resolved]
  - Femur fracture [Unknown]
  - Lymphopenia [Unknown]
  - Abdominal pain [Unknown]
  - Abdominal discomfort [Unknown]
  - Lymphatic disorder [Recovered/Resolved]
  - Nausea [Unknown]

NARRATIVE: CASE EVENT DATE: 20180119
